FAERS Safety Report 12465235 (Version 1)
Quarter: 2016Q2

REPORT INFORMATION
  Report Type: Spontaneous
  Country: US (occurrence: US)
  Receive Date: 20160614
  Receipt Date: 20160614
  Transmission Date: 20160815
  Serious: No
  Sender: FDA-Public Use
  Company Number: US-IMPAX LABORATORIES, INC-2015-IPXL-00891

PATIENT
  Sex: Male
  Weight: 122 kg

DRUGS (1)
  1. PYRIDOSTIGMINE BROMIDE. [Suspect]
     Active Substance: PYRIDOSTIGMINE BROMIDE
     Indication: CARDIAC AUTONOMIC NEUROPATHY
     Dosage: 1 TABLET ONCE TO TWICE DAILY
     Route: 048
     Dates: start: 20150708

REACTIONS (3)
  - Dysarthria [Recovered/Resolved]
  - Vision blurred [Recovered/Resolved]
  - Product physical issue [Unknown]

NARRATIVE: CASE EVENT DATE: 2015
